FAERS Safety Report 7481128-9 (Version None)
Quarter: 2011Q2

REPORT INFORMATION
  Report Type: 
  Country: None (occurrence: None)
  Receive Date: 20110504
  Receipt Date: 20110427
  Transmission Date: 20111010
  Serious: Yes (Hospitalization, Disabling, Other)
  Sender: FDA-Public Use
  Company Number: 2010SP034933

PATIENT
  Age: 25 Year
  Sex: Female
  Weight: 117.028 kg

DRUGS (2)
  1. NUVARING [Suspect]
     Indication: CONTRACEPTION
     Dates: start: 20060401, end: 20080618
  2. ZYRTEC [Concomitant]

REACTIONS (13)
  - GRAND MAL CONVULSION [None]
  - EMOTIONAL DISORDER [None]
  - IMPAIRED WORK ABILITY [None]
  - SUBARACHNOID HAEMORRHAGE [None]
  - ANXIETY [None]
  - SPINAL CORD DISORDER [None]
  - MOOD ALTERED [None]
  - DEPRESSION [None]
  - CEREBRAL INFARCTION [None]
  - EMBOLIC STROKE [None]
  - HYPERCOAGULATION [None]
  - FEAR [None]
  - OVARIAN CYST [None]
